FAERS Safety Report 9300062 (Version 2)
Quarter: 2013Q3

REPORT INFORMATION
  Report Type: Spontaneous
  Country: US (occurrence: US)
  Receive Date: 20130521
  Receipt Date: 20130712
  Transmission Date: 20140515
  Serious: Yes (Death)
  Sender: FDA-Public Use
  Company Number: US-009507513-1305USA010430

PATIENT
  Sex: Male

DRUGS (7)
  1. ISENTRESS [Suspect]
     Dosage: 400 MG TABLET TWICE DAILY
     Route: 048
  2. LYRICA [Concomitant]
  3. TESTOSTERONE [Concomitant]
     Route: 030
  4. PROZAC [Concomitant]
  5. DOXEPIN HYDROCHLORIDE [Concomitant]
  6. AZMACORT [Concomitant]
  7. PROVENTIL [Concomitant]
     Route: 055

REACTIONS (1)
  - Death [Fatal]
